FAERS Safety Report 19755813 (Version 2)
Quarter: 2021Q4

REPORT INFORMATION
  Report Type: Spontaneous
  Country: US (occurrence: US)
  Receive Date: 20210827
  Receipt Date: 20211013
  Transmission Date: 20220303
  Serious: No
  Sender: FDA-Public Use
  Company Number: US-MYLANLABS-2021M1055615

PATIENT
  Sex: Female
  Weight: 48 kg

DRUGS (2)
  1. EPINEPHRINE [Suspect]
     Active Substance: EPINEPHRINE
     Indication: Oral allergy syndrome
     Dosage: ONE INJECTION AS NEEDED
     Route: 058
     Dates: start: 202104
  2. EPINEPHRINE [Suspect]
     Active Substance: EPINEPHRINE
     Dosage: ONE INJECTION AS NEEDED
     Route: 058

REACTIONS (1)
  - Product quality issue [None]
